FAERS Safety Report 17381024 (Version 2)
Quarter: 2020Q1

REPORT INFORMATION
  Report Type: Spontaneous
  Country: DZ (occurrence: DZ)
  Receive Date: 20200206
  Receipt Date: 20200214
  Transmission Date: 20200409
  Serious: Yes (Death, Other)
  Sender: FDA-Public Use
  Company Number: DZ-BIOVITRUM-2020DZ0038

PATIENT
  Age: 6 Month
  Sex: Male
  Weight: 5.5 kg

DRUGS (6)
  1. ORFADIN [Suspect]
     Active Substance: NITISINONE
     Indication: TYROSINAEMIA
     Route: 048
     Dates: start: 20190820
  2. CEFTAZIDIME. [Concomitant]
     Active Substance: CEFTAZIDIME
     Indication: PRODUCT USED FOR UNKNOWN INDICATION
  3. AUGMENTIN [Concomitant]
     Active Substance: AMOXICILLIN\CLAVULANATE POTASSIUM
     Indication: INFECTION PROPHYLAXIS
     Dosage: 20MG/KG IN TWO INTAKES
     Route: 048
     Dates: start: 20191130, end: 20191227
  4. CEFACIDAL [Concomitant]
     Active Substance: CEFAZOLIN SODIUM
     Indication: PRODUCT USED FOR UNKNOWN INDICATION
  5. VANCOMYCINE [Concomitant]
     Active Substance: VANCOMYCIN
     Indication: PRODUCT USED FOR UNKNOWN INDICATION
  6. AMINKLIN [Concomitant]
     Indication: PRODUCT USED FOR UNKNOWN INDICATION

REACTIONS (7)
  - Acrodermatitis enteropathica [Fatal]
  - Skin infection [Fatal]
  - Balanoposthitis [Unknown]
  - Erythema [Unknown]
  - Rash erythematous [Unknown]
  - Septic shock [Fatal]
  - Dermatitis exfoliative [Unknown]

NARRATIVE: CASE EVENT DATE: 20191231
